FAERS Safety Report 11344565 (Version 1)
Quarter: 2015Q3

REPORT INFORMATION
  Report Type: Spontaneous
  Country: US (occurrence: US)
  Receive Date: 20150806
  Receipt Date: 20150806
  Transmission Date: 20151125
  Serious: Yes (Hospitalization)
  Sender: FDA-Public Use
  Company Number: US-UNITED THERAPEUTICS-UNT-2015-009305

PATIENT
  Age: 5 Year
  Weight: 18.9 kg

DRUGS (7)
  1. GM-CSF [Suspect]
     Active Substance: GRANULOCYTE-MACROPHAGE COLONY-STIMULATING FACTOR
     Indication: NEUROBLASTOMA
     Dosage: SUBJECT COMPLETED COURSE 1, GM-CSF NOT PART OF COURSE 2
     Dates: end: 20150528
  2. LOPERAMIDE [Concomitant]
     Active Substance: LOPERAMIDE
     Indication: PRODUCT USED FOR UNKNOWN INDICATION
  3. ZINC OXIDE. [Concomitant]
     Active Substance: ZINC OXIDE
     Indication: PRODUCT USED FOR UNKNOWN INDICATION
     Route: 061
  4. INTERLEUKIN-2 RECOMBINANT [Suspect]
     Active Substance: ALDESLEUKIN
     Dosage: COURSE 2: 4.5 X 10^6 IU/M2/DAY
     Dates: start: 20150615, end: 20150618
  5. INTERLEUKIN-2 RECOMBINANT [Suspect]
     Active Substance: ALDESLEUKIN
     Indication: NEUROBLASTOMA
     Dosage: COURSE 2: 3 X 10^6 IU/M2/DAY
     Dates: start: 20150608, end: 20150611
  6. 13-CIS-RETINOIC ACID [Suspect]
     Active Substance: ISOTRETINOIN
     Indication: NEUROBLASTOMA
     Dosage: COURSE 1: 80 MG/M2/DOSE, BID
     Dates: start: 20150526, end: 20150608
  7. UNITUXIN [Suspect]
     Active Substance: DINUTUXIMAB
     Indication: NEUROBLASTOMA
     Dosage: 17.5 MG/M2/DAY
     Route: 041
     Dates: start: 20150615, end: 20150617

REACTIONS (4)
  - Posterior reversible encephalopathy syndrome [Recovering/Resolving]
  - Diarrhoea [Recovering/Resolving]
  - Blood bilirubin increased [Recovering/Resolving]
  - Blood fibrinogen decreased [Recovering/Resolving]

NARRATIVE: CASE EVENT DATE: 20150611
